FAERS Safety Report 26142158 (Version 1)
Quarter: 2025Q4

REPORT INFORMATION
  Report Type: Spontaneous
  Country: US (occurrence: None)
  Receive Date: 20251210
  Receipt Date: 20251210
  Transmission Date: 20260118
  Serious: No
  Sender: HALOZYME
  Company Number: US-HALOZYME THERAPEUTICS, INC.-2025-US-TX -10129

PATIENT
  Age: 65 Year

DRUGS (11)
  1. XYOSTED [Suspect]
     Active Substance: TESTOSTERONE ENANTHATE
     Indication: Blood testosterone decreased
     Dosage: 75 MG/0.5ML, Q 1 WK (WITHDRAWN)
     Route: 058
  2. XYOSTED [Suspect]
     Active Substance: TESTOSTERONE ENANTHATE
     Dosage: 100 MG/0.5ML, Q 1 WK
     Route: 058
  3. DESCOVY [Concomitant]
     Active Substance: EMTRICITABINE\TENOFOVIR ALAFENAMIDE FUMARATE
     Indication: Product used for unknown indication
     Dosage: 200 MILLIGRAM
  4. BUPROPION [Concomitant]
     Active Substance: BUPROPION
     Indication: Product used for unknown indication
     Dosage: 300 MILLIGRAM
  5. BUSPIRONE [Concomitant]
     Active Substance: BUSPIRONE HYDROCHLORIDE
     Indication: Product used for unknown indication
     Dosage: UNK
  6. GABAPENTIN [Concomitant]
     Active Substance: GABAPENTIN
     Indication: Product used for unknown indication
     Dosage: UNK
  7. DIVALPROEX SODIUM [Concomitant]
     Active Substance: DIVALPROEX SODIUM
     Indication: Product used for unknown indication
     Dosage: UNK
  8. METOPROLOL [Concomitant]
     Active Substance: METOPROLOL
     Indication: Product used for unknown indication
     Dosage: UNK
  9. OLMESARTAN [Concomitant]
     Active Substance: OLMESARTAN
     Indication: Product used for unknown indication
     Dosage: UNK
  10. FARXIGA [Concomitant]
     Active Substance: DAPAGLIFLOZIN PROPANEDIOL
     Indication: Product used for unknown indication
     Dosage: UNK
  11. TRAZODONE [Concomitant]
     Active Substance: TRAZODONE HYDROCHLORIDE
     Indication: Product used for unknown indication
     Dosage: UNK

REACTIONS (3)
  - Drug ineffective [Unknown]
  - Asthenia [Unknown]
  - Product dose omission issue [Recovered/Resolved]
